FAERS Safety Report 8975638 (Version 1)
Quarter: 2012Q4

REPORT INFORMATION
  Report Type: Report from Study
  Country: CN (occurrence: CN)
  Receive Date: 20121219
  Receipt Date: 20121219
  Transmission Date: 20130627
  Serious: Yes (Hospitalization)
  Sender: FDA-Public Use
  Company Number: CN-ROCHE-1170147

PATIENT
  Age: 54 None
  Sex: Male
  Weight: 60 kg

DRUGS (4)
  1. MYCOPHENOLATE MOFETIL [Suspect]
     Indication: RENAL TRANSPLANT
     Route: 048
     Dates: start: 19940607, end: 2010
  2. MYCOPHENOLATE MOFETIL [Suspect]
     Route: 048
     Dates: start: 201204
  3. TACROLIMUS [Concomitant]
     Indication: RENAL TRANSPLANT
     Route: 048
     Dates: start: 19940607, end: 2010
  4. TACROLIMUS [Concomitant]
     Route: 048
     Dates: start: 201204

REACTIONS (3)
  - Encephalitis fungal [Recovering/Resolving]
  - Lung infection [Unknown]
  - Keratitis [Not Recovered/Not Resolved]
